FAERS Safety Report 8092479-1 (Version None)
Quarter: 2011Q4

REPORT INFORMATION
  Report Type: 
  Country: None (occurrence: None)
  Receive Date: 20111222
  Receipt Date: 20111010
  Transmission Date: 20120403
  Serious: Yes (Hospitalization)
  Sender: FDA-Public Use
  Company Number: UTC-011059

PATIENT
  Age: 85 Year
  Sex: Female
  Weight: 44.09 kg

DRUGS (2)
  1. TRACLEER [Concomitant]
  2. TYVASO [Suspect]
     Indication: COR PULMONALE CHRONIC
     Dosage: 216  MCG  (54 MCG, 4 IN 1 D), INHALATION
     Route: 055
     Dates: start: 20100407

REACTIONS (1)
  - HAEMORRHAGE [None]
